FAERS Safety Report 9219026 (Version 1)
Quarter: 2013Q2

REPORT INFORMATION
  Report Type: Spontaneous
  Country: CA (occurrence: CA)
  Receive Date: 20130409
  Receipt Date: 20130409
  Transmission Date: 20140414
  Serious: Yes (Other)
  Sender: FDA-Public Use
  Company Number: CA-MYLANLABS-2013S1007129

PATIENT
  Sex: 0

DRUGS (7)
  1. ISOFLURANE [Suspect]
     Indication: ANAESTHESIA
  2. REMIFENTANIL [Suspect]
     Indication: ANAESTHESIA
     Dosage: INITIAL SLOW BOLUS OVER 30-60 SECONDS
  3. REMIFENTANIL [Suspect]
     Indication: ANAESTHESIA
     Dosage: INFUSION
  4. REMIFENTANIL [Suspect]
     Indication: ANAESTHESIA
     Dosage: 5 MINS AFTER INTUBATION (0.25 UG/KG/MIN)
  5. PROPOFOL [Suspect]
     Indication: ANAESTHESIA
     Dosage: INDUCTION
  6. PROPOFOL [Suspect]
     Indication: ANAESTHESIA
     Dosage: EVERY 10 SECONDS TO LOSS OF CONSCIOUSNESS
  7. PROPOFOL [Suspect]
     Indication: ANAESTHESIA
     Dosage: INFUSION (100UG/KG/MIN)

REACTIONS (3)
  - Apnoea [Recovered/Resolved]
  - Loss of consciousness [Recovered/Resolved]
  - Muscle rigidity [Recovered/Resolved]
